FAERS Safety Report 21356136 (Version 1)
Quarter: 2022Q3

REPORT INFORMATION
  Report Type: Report from Study
  Country: JP (occurrence: JP)
  Receive Date: 20220920
  Receipt Date: 20220920
  Transmission Date: 20221027
  Serious: Yes (Hospitalization, Other)
  Sender: FDA-Public Use
  Company Number: JP-ferring-EVA202200892FERRINGPH

PATIENT

DRUGS (7)
  1. DESMOPRESSIN [Suspect]
     Active Substance: DESMOPRESSIN
     Indication: Nocturia
     Dosage: 25 UG
     Route: 065
     Dates: start: 20211015, end: 20220318
  2. SILODOSIN [Concomitant]
     Active Substance: SILODOSIN
     Indication: Nocturia
     Dosage: 8 MG
     Route: 048
  3. TOVIAZ [Concomitant]
     Active Substance: FESOTERODINE FUMARATE
     Indication: Nocturia
     Dosage: 4 MG
     Route: 048
  4. MIRABEGRON [Concomitant]
     Active Substance: MIRABEGRON
     Indication: Nocturia
     Dosage: 50 MG
     Route: 048
  5. ADALAT CC [Concomitant]
     Active Substance: NIFEDIPINE
     Indication: Hypertension
     Dosage: 20 MG
     Route: 048
  6. PERINDOPRIL ERBUMINE [Concomitant]
     Active Substance: PERINDOPRIL ERBUMINE
     Indication: Hypertension
     Dosage: 4 MG
     Route: 048
  7. CILOSTAZOL [Concomitant]
     Active Substance: CILOSTAZOL
     Indication: Hypertension
     Dosage: 100 MG
     Route: 048

REACTIONS (5)
  - Cardiac failure congestive [Recovered/Resolved]
  - Glomerular filtration rate decreased [Unknown]
  - Labelled drug-disease interaction medication error [Recovered/Resolved]
  - Contraindicated product administered [Recovered/Resolved]
  - Underdose [Recovered/Resolved]

NARRATIVE: CASE EVENT DATE: 20211015
